FAERS Safety Report 8312140-5 (Version None)
Quarter: 2012Q2

REPORT INFORMATION
  Report Type: 
  Country: None (occurrence: None)
  Receive Date: 20120425
  Receipt Date: 20110808
  Transmission Date: 20120825
  Serious: Yes (Other)
  Sender: FDA-Public Use
  Company Number: US-TEVA-US017680

PATIENT
  Sex: Male
  Weight: 75 kg

DRUGS (2)
  1. PROVIGIL [Suspect]
     Dosage: 1 TAB, DOSE UNKNOWN
     Route: 048
     Dates: start: 20060427, end: 20060427
  2. PROVIGIL [Suspect]
     Dosage: 2 TABS
     Route: 048
     Dates: start: 20060428

REACTIONS (1)
  - HALLUCINATION [None]
